FAERS Safety Report 15395835 (Version 1)
Quarter: 2018Q3

REPORT INFORMATION
  Report Type: Spontaneous
  Country: LV (occurrence: LV)
  Receive Date: 20180918
  Receipt Date: 20180918
  Transmission Date: 20181010
  Serious: Yes (Other)
  Sender: FDA-Public Use
  Company Number: LV-UCBSA-2018042295

PATIENT
  Age: 30 Year
  Sex: Female

DRUGS (7)
  1. MEDROL [Suspect]
     Active Substance: METHYLPREDNISOLONE
     Indication: PRODUCT USED FOR UNKNOWN INDICATION
     Dosage: 16 MG, 1X/DAY
     Dates: start: 201403, end: 201605
  2. OMALIZUMAB. [Concomitant]
     Active Substance: OMALIZUMAB
     Indication: CHRONIC SPONTANEOUS URTICARIA
     Dosage: 300 MG, CYCLIC, 1X IN 4 WEEKS
     Route: 058
     Dates: start: 20160610, end: 20170101
  3. XYZAL [Suspect]
     Active Substance: LEVOCETIRIZINE DIHYDROCHLORIDE
     Indication: OFF LABEL USE
  4. MEDROL [Suspect]
     Active Substance: METHYLPREDNISOLONE
     Dosage: HIGHER THAN 16 MG
  5. OMALIZUMAB. [Concomitant]
     Active Substance: OMALIZUMAB
     Indication: ANGIOEDEMA
     Dosage: 150 MG, UNK
     Route: 058
     Dates: start: 20160517, end: 20160517
  6. XYZAL [Suspect]
     Active Substance: LEVOCETIRIZINE DIHYDROCHLORIDE
     Indication: ANGIOEDEMA
     Dosage: UNK
  7. XYZAL [Suspect]
     Active Substance: LEVOCETIRIZINE DIHYDROCHLORIDE
     Indication: CHRONIC SPONTANEOUS URTICARIA
     Dosage: 5?20 MG, 1X/DAY/ AS NEEDED
     Dates: start: 201403

REACTIONS (5)
  - Off label use [Unknown]
  - Pain [Recovered/Resolved]
  - Myalgia [Recovered/Resolved]
  - Drug dependence [Unknown]
  - Arthralgia [Recovered/Resolved]

NARRATIVE: CASE EVENT DATE: 2014
